FAERS Safety Report 7017593-0 (Version None)
Quarter: 2010Q3

REPORT INFORMATION
  Report Type: 
  Country: None (occurrence: None)
  Receive Date: 20100909
  Receipt Date: 20100721
  Transmission Date: 20110219
  Serious: No
  Sender: FDA-Public Use
  Company Number: 2010SP040117

PATIENT
  Age: 28 Year
  Sex: Male

DRUGS (2)
  1. SAPHRIS [Suspect]
     Indication: BIPOLAR DISORDER
     Dosage: 10 MG;HS;PO
     Route: 048
     Dates: start: 20100716
  2. KLONOPIN [Concomitant]

REACTIONS (2)
  - HUNGER [None]
  - INCORRECT ROUTE OF DRUG ADMINISTRATION [None]
